FAERS Safety Report 4837898-9 (Version None)
Quarter: 2005Q4

REPORT INFORMATION
  Report Type: 
  Country: None (occurrence: None)
  Receive Date: 20051123
  Receipt Date: 20051123
  Transmission Date: 20060501
  Serious: Yes (Other)
  Sender: FDA-Public Use
  Company Number: None

PATIENT
  Sex: Female
  Weight: 63.5036 kg

DRUGS (1)
  1. CLIMARA PRO [Suspect]
     Indication: MENOPAUSAL DISORDER
     Dosage: 0.045/0.15 MG 1 PATCH PER 7 DAYS
     Dates: start: 20051031, end: 20051105

REACTIONS (2)
  - APPLICATION SITE DERMATITIS [None]
  - PRURITUS [None]
